FAERS Safety Report 6145560-8 (Version None)
Quarter: 2009Q2

REPORT INFORMATION
  Report Type: 
  Country: None (occurrence: None)
  Receive Date: 20090402
  Receipt Date: 20090319
  Transmission Date: 20091009
  Serious: Yes (Other)
  Sender: FDA-Public Use
  Company Number: 2009S1005142

PATIENT
  Sex: Female

DRUGS (2)
  1. MIRTAZAPINE [Suspect]
     Indication: DEPRESSION
     Dosage: 15 MG; DAILY; 30 MG
     Dates: start: 20090121, end: 20090128
  2. ZOPLICONE [Concomitant]

REACTIONS (12)
  - ABNORMAL DREAMS [None]
  - CONDITION AGGRAVATED [None]
  - DEPRESSION [None]
  - DIPLOPIA [None]
  - DISTURBANCE IN ATTENTION [None]
  - DIZZINESS [None]
  - DYSARTHRIA [None]
  - INSOMNIA [None]
  - PAIN [None]
  - SENSATION OF HEAVINESS [None]
  - SUICIDAL IDEATION [None]
  - WEIGHT INCREASED [None]
